FAERS Safety Report 8151378-7 (Version None)
Quarter: 2012Q1

REPORT INFORMATION
  Report Type: 
  Country: None (occurrence: None)
  Receive Date: 20120220
  Receipt Date: 20120216
  Transmission Date: 20120608
  Serious: Yes (Hospitalization)
  Sender: FDA-Public Use
  Company Number: FR-ROCHE-1022183

PATIENT
  Sex: Male

DRUGS (4)
  1. MYCOPHENOLATE MOFETIL (CELLCEPT) [Suspect]
     Indication: TRANSPLANT REJECTION
     Route: 002
     Dates: start: 20110909
  2. CYCLOSPORINE [Suspect]
     Indication: TRANSPLANT REJECTION
     Route: 002
     Dates: start: 20110909, end: 20111214
  3. PREDNISOLONE [Suspect]
     Indication: TRANSPLANT REJECTION
     Route: 002
     Dates: start: 20110910
  4. PROGRAF [Concomitant]
     Dates: start: 20111214

REACTIONS (2)
  - BIOPSY KIDNEY ABNORMAL [None]
  - TRANSPLANT REJECTION [None]
